FAERS Safety Report 8396227-7 (Version None)
Quarter: 2012Q2

REPORT INFORMATION
  Report Type: 
  Country: None (occurrence: None)
  Receive Date: 20120530
  Receipt Date: 20120515
  Transmission Date: 20120825
  Serious: Yes (Other)
  Sender: FDA-Public Use
  Company Number: DE-ROCHE-1071755

PATIENT
  Sex: Male

DRUGS (3)
  1. TORSEMIDE [Suspect]
     Indication: PRODUCT USED FOR UNKNOWN INDICATION
     Dates: start: 19900101
  2. MARCUMAR [Concomitant]
  3. ALLOPURINOL [Concomitant]

REACTIONS (4)
  - ERYTHROPENIA [None]
  - LEUKOPENIA [None]
  - HAEMOGLOBIN DECREASED [None]
  - THROMBOCYTOPENIA [None]
